FAERS Safety Report 20077794 (Version 1)
Quarter: 2021Q4

REPORT INFORMATION
  Report Type: Spontaneous
  Country: GB (occurrence: GB)
  Receive Date: 20211116
  Receipt Date: 20211116
  Transmission Date: 20220303
  Serious: Yes (Hospitalization, Other)
  Sender: FDA-Public Use
  Company Number: GB-ABBVIE-21K-167-4163977-00

PATIENT
  Age: 40 Year

DRUGS (9)
  1. HUMIRA [Suspect]
     Active Substance: ADALIMUMAB
     Indication: Product used for unknown indication
     Route: 058
     Dates: start: 201403, end: 201409
  2. INFLIXIMAB [Suspect]
     Active Substance: INFLIXIMAB
     Indication: Product used for unknown indication
     Route: 065
     Dates: start: 201601, end: 201610
  3. SECUKINUMAB [Suspect]
     Active Substance: SECUKINUMAB
     Indication: Product used for unknown indication
     Route: 065
     Dates: start: 201701, end: 201703
  4. SECUKINUMAB [Suspect]
     Active Substance: SECUKINUMAB
     Route: 065
     Dates: start: 201703, end: 201705
  5. CERTOLIZUMAB [Suspect]
     Active Substance: CERTOLIZUMAB
     Indication: Product used for unknown indication
     Route: 065
     Dates: start: 201706, end: 201708
  6. USTEKINUMAB [Suspect]
     Active Substance: USTEKINUMAB
     Indication: Product used for unknown indication
     Route: 065
     Dates: start: 20180522, end: 201812
  7. TOFACITINIB [Suspect]
     Active Substance: TOFACITINIB
     Indication: Product used for unknown indication
     Route: 065
     Dates: start: 201909
  8. LEFLUNOMIDE [Suspect]
     Active Substance: LEFLUNOMIDE
     Indication: Product used for unknown indication
     Route: 065
  9. GOLIMUMAB [Suspect]
     Active Substance: GOLIMUMAB
     Indication: Product used for unknown indication
     Route: 065
     Dates: start: 201410, end: 201512

REACTIONS (20)
  - Bone infarction [Unknown]
  - Bone infarction [Unknown]
  - Osteonecrosis [Unknown]
  - Arthralgia [Unknown]
  - Malaise [Unknown]
  - Somnolence [Unknown]
  - General physical health deterioration [Unknown]
  - Infusion related reaction [Unknown]
  - Spinal disorder [Recovering/Resolving]
  - Inflammation [Not Recovered/Not Resolved]
  - Arthritis [Unknown]
  - Infection [Unknown]
  - Pyrexia [Unknown]
  - Infection [Unknown]
  - Psoriasis [Unknown]
  - Therapeutic product effect decreased [Unknown]
  - Abdominal discomfort [Unknown]
  - Therapeutic product effect decreased [Unknown]
  - Influenza like illness [Unknown]
  - Drug ineffective [Unknown]

NARRATIVE: CASE EVENT DATE: 20140101
